FAERS Safety Report 7183468-X (Version None)
Quarter: 2010Q4

REPORT INFORMATION
  Report Type: 
  Country: None (occurrence: None)
  Receive Date: 20101222
  Receipt Date: 20101215
  Transmission Date: 20110411
  Serious: Yes (Hospitalization)
  Sender: FDA-Public Use
  Company Number: SE-SANOFI-AVENTIS-2010SA062333

PATIENT
  Sex: Male

DRUGS (4)
  1. MULTAQ [Suspect]
     Indication: ATRIAL FIBRILLATION
     Route: 048
     Dates: start: 20100607, end: 20101111
  2. BISOPROLOL [Suspect]
     Route: 048
     Dates: end: 20101111
  3. BISOPROLOL [Suspect]
     Route: 048
     Dates: start: 20101112
  4. WARAN [Concomitant]

REACTIONS (4)
  - ARTHRALGIA [None]
  - ATRIAL FIBRILLATION [None]
  - CONDITION AGGRAVATED [None]
  - MUSCULAR WEAKNESS [None]
